FAERS Safety Report 8643615 (Version 2)
Quarter: 2012Q4

REPORT INFORMATION
  Report Type: 
  Country: JP (occurrence: JP)
  Receive Date: 20120629
  Receipt Date: 20121108
  Transmission Date: 20130627
  Serious: Yes (Other)
  Sender: FDA-Public Use
  Company Number: JP-UCBSA-060149

PATIENT
  Age: 12 Month
  Sex: Male

DRUGS (2)
  1. E KEPPRA [Suspect]
     Route: 048
  2. E KEPPRA [Suspect]
     Route: 048

REACTIONS (3)
  - Bradycardia [Recovered/Resolved]
  - Epilepsy [Recovered/Resolved]
  - Dyspnoea [Unknown]
